FAERS Safety Report 15351638 (Version 1)
Quarter: 2018Q3

REPORT INFORMATION
  Report Type: Report from Study
  Country: US (occurrence: US)
  Receive Date: 20180905
  Receipt Date: 20180905
  Transmission Date: 20181010
  Serious: Yes (Other)
  Sender: FDA-Public Use
  Company Number: US-ROCHE-2176930

PATIENT
  Sex: Female

DRUGS (2)
  1. OCREVUS [Suspect]
     Active Substance: OCRELIZUMAB
     Indication: MULTIPLE SCLEROSIS
     Route: 042
     Dates: start: 201711
  2. OCREVUS [Suspect]
     Active Substance: OCRELIZUMAB
     Dosage: RECENT INFUSION: 15/MAY/2018
     Route: 042

REACTIONS (4)
  - Urinary tract infection [Unknown]
  - Malaise [Unknown]
  - Movement disorder [Not Recovered/Not Resolved]
  - Infection [Not Recovered/Not Resolved]
